FAERS Safety Report 11288671 (Version 2)
Quarter: 2015Q4

REPORT INFORMATION
  Report Type: Report from Study
  Country: US (occurrence: US)
  Receive Date: 20150721
  Receipt Date: 20151022
  Transmission Date: 20160304
  Serious: Yes (Other)
  Sender: FDA-Public Use
  Company Number: US-SA-2014SA016277

PATIENT
  Age: 55 Year
  Sex: Female

DRUGS (3)
  1. KLONOPIN [Concomitant]
     Active Substance: CLONAZEPAM
  2. AUBAGIO [Suspect]
     Active Substance: TERIFLUNOMIDE
     Indication: MULTIPLE SCLEROSIS
     Route: 048
     Dates: start: 20140101
  3. MARIJUANA [Concomitant]
     Active Substance: CANNABIS SATIVA SUBSP. INDICA TOP

REACTIONS (23)
  - Rhinorrhoea [Unknown]
  - Drug ineffective [Unknown]
  - Pain in extremity [Recovered/Resolved]
  - Urinary tract infection [Unknown]
  - Cough [Unknown]
  - Oropharyngeal pain [Unknown]
  - Gait disturbance [Unknown]
  - Incontinence [Unknown]
  - Fall [Unknown]
  - Skin discolouration [Unknown]
  - Tooth fracture [Unknown]
  - Myoclonus [Recovered/Resolved]
  - Areflexia [Unknown]
  - Multiple sclerosis relapse [Recovering/Resolving]
  - Asthenia [Unknown]
  - Restless legs syndrome [Unknown]
  - Bladder disorder [Unknown]
  - Urinary retention [Unknown]
  - Face injury [Unknown]
  - Balance disorder [Unknown]
  - Cystitis [Recovering/Resolving]
  - Haemorrhage urinary tract [Recovering/Resolving]
  - Bronchitis [Unknown]

NARRATIVE: CASE EVENT DATE: 2015
